FAERS Safety Report 10867258 (Version 5)
Quarter: 2018Q4

REPORT INFORMATION
  Report Type: Spontaneous
  Country: JP (occurrence: JP)
  Receive Date: 20150225
  Receipt Date: 20181004
  Transmission Date: 20190204
  Serious: Yes (Hospitalization, Other)
  Sender: FDA-Public Use
  Company Number: JP-BAYER-2015-024841

PATIENT
  Age: 28 Year
  Sex: Female
  Weight: 47 kg

DRUGS (4)
  1. BETAFERON [Suspect]
     Active Substance: INTERFERON BETA-1B
     Indication: MULTIPLE SCLEROSIS
     Dosage: 8 MIU, QOD
     Route: 058
     Dates: start: 20130802, end: 20150217
  2. LOXONIN [Concomitant]
     Active Substance: LOXOPROFEN SODIUM
     Dosage: DAILY DOSE 1 DF
     Route: 048
     Dates: start: 20071126, end: 20121214
  3. SELBEX [Concomitant]
     Active Substance: TEPRENONE
     Dosage: DAILY DOSE 1 DF
     Route: 048
     Dates: start: 20130802, end: 20150217
  4. BETAFERON [Suspect]
     Active Substance: INTERFERON BETA-1B
     Indication: MULTIPLE SCLEROSIS
     Dosage: 8 MIU, QOD
     Route: 058
     Dates: start: 20071126, end: 20121214

REACTIONS (5)
  - Myocarditis [Recovering/Resolving]
  - Dyspnoea [Recovering/Resolving]
  - Cough [Recovering/Resolving]
  - Exposure during pregnancy [Recovered/Resolved]
  - Caesarean section [Recovered/Resolved]

NARRATIVE: CASE EVENT DATE: 20130727
